FAERS Safety Report 4982030-4 (Version None)
Quarter: 2006Q2

REPORT INFORMATION
  Report Type: 
  Country: None (occurrence: None)
  Receive Date: 20060425
  Receipt Date: 20051205
  Transmission Date: 20061013
  Serious: Yes (Hospitalization)
  Sender: FDA-Public Use
  Company Number: US-MERCK-0512USA00633

PATIENT
  Age: 72 Year
  Sex: Female
  Weight: 86 kg

DRUGS (12)
  1. VIOXX [Suspect]
     Indication: ARTHRITIS
     Route: 048
     Dates: start: 20010415, end: 20020501
  2. VIOXX [Suspect]
     Route: 065
     Dates: start: 20040801, end: 20040801
  3. FOSAMAX [Concomitant]
     Route: 065
  4. PREVACID [Concomitant]
     Route: 065
  5. VERAPAMIL MSD LP [Concomitant]
     Indication: HYPERTENSION
     Route: 065
     Dates: start: 19900101, end: 20020101
  6. LIPITOR [Concomitant]
     Indication: BLOOD CHOLESTEROL INCREASED
     Route: 065
     Dates: start: 19900101
  7. ZOCOR [Concomitant]
     Indication: BLOOD CHOLESTEROL INCREASED
     Route: 065
     Dates: start: 19900101
  8. BAYCOL [Concomitant]
     Indication: BLOOD CHOLESTEROL INCREASED
     Route: 065
     Dates: start: 19900101
  9. ADVIL [Concomitant]
     Indication: PAIN
     Route: 065
     Dates: start: 19900101
  10. MOTRIN [Concomitant]
     Indication: PAIN
     Route: 065
     Dates: start: 19900101
  11. NAPROXEN [Concomitant]
     Indication: PAIN
     Route: 065
     Dates: start: 19900101
  12. MERIDIA [Concomitant]
     Indication: MEDICAL DIET
     Route: 065
     Dates: start: 20010501, end: 20010701

REACTIONS (8)
  - ACUTE MYOCARDIAL INFARCTION [None]
  - ANGINA UNSTABLE [None]
  - ARTERIOGRAM CORONARY [None]
  - ATRIAL FIBRILLATION [None]
  - CATHETERISATION CARDIAC [None]
  - GENERALISED ANXIETY DISORDER [None]
  - MENISCUS LESION [None]
  - MYOCARDIAL INFARCTION [None]
